FAERS Safety Report 9398414 (Version 1)
Quarter: 2013Q3

REPORT INFORMATION
  Report Type: Report from Study
  Country: CA (occurrence: CA)
  Receive Date: 20130712
  Receipt Date: 20130712
  Transmission Date: 20140515
  Serious: Yes (Hospitalization, Other)
  Sender: FDA-Public Use
  Company Number: CA-ABBOTT-13P-028-1116365-00

PATIENT
  Sex: Male

DRUGS (4)
  1. HUMIRA [Suspect]
     Indication: CROHN^S DISEASE
     Route: 058
     Dates: start: 20120402
  2. HUMIRA [Suspect]
  3. MORPHINE [Suspect]
     Indication: EXPLORATORY OPERATION
  4. MORPHINE [Suspect]
     Indication: CROHN^S DISEASE

REACTIONS (4)
  - Dialysis [Unknown]
  - Adverse drug reaction [Unknown]
  - Crohn^s disease [Recovered/Resolved]
  - Nasopharyngitis [Unknown]
